FAERS Safety Report 5803385-4 (Version None)
Quarter: 2008Q3

REPORT INFORMATION
  Report Type: 
  Country: None (occurrence: None)
  Receive Date: 20080708
  Receipt Date: 20080630
  Transmission Date: 20090109
  Serious: Yes (Other)
  Sender: FDA-Public Use
  Company Number: AR-JNJFOC-20080605733

PATIENT
  Age: 5 Year
  Sex: Male
  Weight: 23 kg

DRUGS (1)
  1. IBUPIRAC 2% [Suspect]
     Indication: PYREXIA
     Route: 048

REACTIONS (2)
  - HYPOTHERMIA [None]
  - PYREXIA [None]
